FAERS Safety Report 23530141 (Version 1)
Quarter: 2024Q1

REPORT INFORMATION
  Report Type: Spontaneous
  Country: US (occurrence: US)
  Receive Date: 20240216
  Receipt Date: 20240216
  Transmission Date: 20240409
  Serious: Yes (Other)
  Sender: FDA-Public Use
  Company Number: US-DRL-USA-LIT/USA/24/0002532

PATIENT
  Age: 62 Year
  Sex: Female

DRUGS (3)
  1. PEMETREXED [Suspect]
     Active Substance: PEMETREXED
     Indication: Hereditary non-polyposis colorectal cancer syndrome
  2. PEMBROLIZUMAB [Suspect]
     Active Substance: PEMBROLIZUMAB
     Indication: Hereditary non-polyposis colorectal cancer syndrome
  3. OSIMERTINIB [Concomitant]
     Active Substance: OSIMERTINIB

REACTIONS (2)
  - Disease progression [Unknown]
  - Treatment failure [Unknown]
